FAERS Safety Report 16400058 (Version 1)
Quarter: 2019Q2

REPORT INFORMATION
  Report Type: Spontaneous
  Country: US (occurrence: US)
  Receive Date: 20190606
  Receipt Date: 20190606
  Transmission Date: 20190711
  Serious: No
  Sender: FDA-Public Use
  Company Number: US-ALLERGAN-1850431US

PATIENT
  Age: 26 Year
  Sex: Female
  Weight: 60.77 kg

DRUGS (1)
  1. KYBELLA [Suspect]
     Active Substance: DEOXYCHOLIC ACID
     Indication: PRODUCT USED FOR UNKNOWN INDICATION
     Dosage: ACTUAL: 2 VIALS
     Route: 058
     Dates: start: 201807, end: 201807

REACTIONS (1)
  - Condition aggravated [Unknown]
